FAERS Safety Report 16558617 (Version 1)
Quarter: 2019Q3

REPORT INFORMATION
  Report Type: Spontaneous
  Country: AR (occurrence: AR)
  Receive Date: 20190711
  Receipt Date: 20190711
  Transmission Date: 20191004
  Serious: Yes (Other)
  Sender: FDA-Public Use
  Company Number: AR-PFIZER INC-2019295994

PATIENT
  Age: 77 Year
  Sex: Female

DRUGS (1)
  1. SUTENT [Suspect]
     Active Substance: SUNITINIB MALATE
     Indication: METASTATIC RENAL CELL CARCINOMA
     Dosage: UNK
     Dates: start: 20190107

REACTIONS (7)
  - Blood pressure decreased [Unknown]
  - Stupor [Unknown]
  - Asthenia [Unknown]
  - Decreased appetite [Unknown]
  - Head discomfort [Unknown]
  - Dizziness [Unknown]
  - Syncope [Unknown]

NARRATIVE: CASE EVENT DATE: 20190610
